FAERS Safety Report 24718385 (Version 1)
Quarter: 2024Q4

REPORT INFORMATION
  Report Type: Spontaneous
  Country: US (occurrence: US)
  Receive Date: 20241210
  Receipt Date: 20241210
  Transmission Date: 20250115
  Serious: No
  Sender: PFIZER
  Company Number: US-PFIZER INC-PV202400084818

PATIENT
  Age: 85 Year
  Sex: Female
  Weight: 80.726 kg

DRUGS (1)
  1. IBRANCE [Suspect]
     Active Substance: PALBOCICLIB
     Indication: Breast cancer stage IV
     Dosage: TAKE 1 ON DAYS 1-21 WITH 7 DAYS OFF
     Route: 048
     Dates: start: 20240528

REACTIONS (3)
  - Asthenia [Unknown]
  - Fatigue [Unknown]
  - Overweight [Unknown]
